FAERS Safety Report 15683642 (Version 1)
Quarter: 2018Q4

REPORT INFORMATION
  Report Type: Spontaneous
  Country: US (occurrence: US)
  Receive Date: 20181204
  Receipt Date: 20181204
  Transmission Date: 20190205
  Serious: No
  Sender: FDA-Public Use
  Company Number: US-UNITED THERAPEUTICS-UNT-2018-019871

PATIENT
  Age: 40 Year
  Sex: Female
  Weight: 78.5 kg

DRUGS (2)
  1. REMODULIN [Suspect]
     Active Substance: TREPROSTINIL
     Indication: PULMONARY ARTERIAL HYPERTENSION
     Dosage: 0.0716 ?G/KG, CONTINUING
     Route: 058
     Dates: start: 20150618
  2. ADCIRCA [Concomitant]
     Active Substance: TADALAFIL
     Indication: PULMONARY ARTERIAL HYPERTENSION
     Dosage: UNK
     Route: 065

REACTIONS (5)
  - Erythema [Unknown]
  - Dyspnoea [Recovered/Resolved]
  - Device leakage [Unknown]
  - Pruritus [Unknown]
  - Pallor [Unknown]

NARRATIVE: CASE EVENT DATE: 201811
